FAERS Safety Report 16817215 (Version 1)
Quarter: 2019Q3

REPORT INFORMATION
  Report Type: Report from Study
  Country: US (occurrence: US)
  Receive Date: 20190917
  Receipt Date: 20190917
  Transmission Date: 20191005
  Serious: Yes (Hospitalization)
  Sender: FDA-Public Use
  Company Number: US-JNJFOC-20190918131

PATIENT
  Age: 69 Year
  Sex: Female

DRUGS (12)
  1. PREDNISONE. [Concomitant]
     Active Substance: PREDNISONE
  2. CRESEMBA [Concomitant]
     Active Substance: ISAVUCONAZONIUM SULFATE
  3. MAGNESIUM [Concomitant]
     Active Substance: MAGNESIUM
  4. GLIPIZIDE. [Concomitant]
     Active Substance: GLIPIZIDE
  5. BACTRIM [Concomitant]
     Active Substance: SULFAMETHOXAZOLE\TRIMETHOPRIM
  6. TACROLIMUS UNSPECIFIED [Concomitant]
  7. BUDESONIDE UNSPECIFIED [Concomitant]
     Active Substance: BUDESONIDE
  8. IMBRUVICA [Suspect]
     Active Substance: IBRUTINIB
     Indication: NON-HODGKIN^S LYMPHOMA
     Dosage: 280 MG, QD
     Route: 048
     Dates: start: 20190711
  9. LEUCOVORIN CALCIUM. [Concomitant]
     Active Substance: LEUCOVORIN CALCIUM
  10. VALGANCICLOVIR. [Concomitant]
     Active Substance: VALGANCICLOVIR
  11. PROTONIX                           /00661201/ [Concomitant]
     Active Substance: OMEPRAZOLE
  12. CASPOFUNGIN ACETATE. [Concomitant]
     Active Substance: CASPOFUNGIN ACETATE

REACTIONS (4)
  - Incorrect dose administered [Unknown]
  - Pneumonia [Unknown]
  - Off label use [Unknown]
  - Central nervous system lesion [Unknown]

NARRATIVE: CASE EVENT DATE: 2019
